FAERS Safety Report 6107530-5 (Version None)
Quarter: 2009Q1

REPORT INFORMATION
  Report Type: 
  Country: None (occurrence: None)
  Receive Date: 20090309
  Receipt Date: 20090225
  Transmission Date: 20090719
  Serious: Yes (Hospitalization, Other)
  Sender: FDA-Public Use
  Company Number: PHEH2009US01429

PATIENT
  Sex: Male
  Weight: 82.54 kg

DRUGS (7)
  1. ZOMETA [Suspect]
     Indication: METASTASES TO BONE
     Dosage: 4 MG, QMO
     Dates: start: 20030601
  2. CASODEX [Concomitant]
     Dosage: 50 MG, QD
     Dates: start: 20030601
  3. DETROL [Concomitant]
     Dosage: 5 MG, QD
  4. ALTACE [Concomitant]
     Dosage: 10 MG, QD
  5. MEGACE [Concomitant]
     Dosage: 40 MG, QD
  6. PRILOSEC [Concomitant]
     Dosage: 20 MG, QD
  7. ASPIRIN [Concomitant]
     Dosage: 81 MG, QD

REACTIONS (27)
  - ABSCESS [None]
  - ASTHENIA [None]
  - BIOPSY BONE [None]
  - BONE TRIMMING [None]
  - CATHETER PLACEMENT [None]
  - CELLULITIS [None]
  - DIARRHOEA [None]
  - DIZZINESS [None]
  - DYSPNOEA [None]
  - EXOSTOSIS [None]
  - GLOSSODYNIA [None]
  - INCISIONAL DRAINAGE [None]
  - JAW LESION EXCISION [None]
  - MASS [None]
  - MOUTH ULCERATION [None]
  - NAUSEA [None]
  - OEDEMA MOUTH [None]
  - ORAL DISCOMFORT [None]
  - ORTHOSTATIC HYPOTENSION [None]
  - OSTEOARTHRITIS [None]
  - OSTEOMYELITIS [None]
  - OSTEONECROSIS [None]
  - PAIN IN JAW [None]
  - TOOTH EXTRACTION [None]
  - TOOTH INFECTION [None]
  - WEIGHT DECREASED [None]
  - WOUND DEHISCENCE [None]
